FAERS Safety Report 17006654 (Version 4)
Quarter: 2020Q1

REPORT INFORMATION
  Report Type: Spontaneous
  Country: US (occurrence: US)
  Receive Date: 20191107
  Receipt Date: 20200327
  Transmission Date: 20200409
  Serious: Yes (Death, Hospitalization, Other)
  Sender: FDA-Public Use
  Company Number: US-JNJFOC-20191048192

PATIENT
  Sex: Male

DRUGS (1)
  1. ZYTIGA [Suspect]
     Active Substance: ABIRATERONE ACETATE
     Indication: PRODUCT USED FOR UNKNOWN INDICATION
     Route: 048

REACTIONS (7)
  - Spinal fracture [Unknown]
  - Peripheral swelling [Unknown]
  - Fall [Unknown]
  - Weight decreased [Unknown]
  - Loss of consciousness [Unknown]
  - Death [Fatal]
  - Swelling [Unknown]
